FAERS Safety Report 19423774 (Version 1)
Quarter: 2021Q2

REPORT INFORMATION
  Report Type: Spontaneous
  Country: US (occurrence: US)
  Receive Date: 20210616
  Receipt Date: 20210616
  Transmission Date: 20210717
  Serious: Yes (Other)
  Sender: FDA-Public Use
  Company Number: US-PFIZER INC-2021402576

PATIENT
  Age: 61 Year
  Sex: Male
  Weight: 154.22 kg

DRUGS (20)
  1. INLYTA [Suspect]
     Active Substance: AXITINIB
     Dosage: 3 MG, DAILY EVERY 12 HOURS
     Route: 048
     Dates: start: 20210413
  2. TRAZODONE [Concomitant]
     Active Substance: TRAZODONE HYDROCHLORIDE
     Dosage: UNK
  3. TELMISARTAN. [Concomitant]
     Active Substance: TELMISARTAN
     Dosage: UNK
  4. SUCCINATE SODIUM [Concomitant]
     Dosage: UNK
  5. FOLIC ACID. [Concomitant]
     Active Substance: FOLIC ACID
     Dosage: UNK
  6. GABAPENTIN. [Concomitant]
     Active Substance: GABAPENTIN
     Dosage: UNK
  7. MIRTAZAPINE. [Concomitant]
     Active Substance: MIRTAZAPINE
     Dosage: UNK
  8. FENTANYL. [Concomitant]
     Active Substance: FENTANYL
     Dosage: UNK
  9. NARCAN [Concomitant]
     Active Substance: NALOXONE HYDROCHLORIDE
     Dosage: UNK
  10. AMLODIPINE [Concomitant]
     Active Substance: AMLODIPINE BESYLATE
     Dosage: UNK
  11. ATORVASTATIN [Concomitant]
     Active Substance: ATORVASTATIN
     Dosage: UNK
  12. INLYTA [Suspect]
     Active Substance: AXITINIB
     Indication: RENAL CANCER
     Dosage: 3 MG, DAILY EVERY 12 HOURS
     Route: 048
     Dates: start: 20210326, end: 20210404
  13. ASPRIN [Concomitant]
     Active Substance: ASPIRIN
     Dosage: UNK
  14. METOPROLOL. [Concomitant]
     Active Substance: METOPROLOL
     Dosage: UNK
  15. TORSEMIDE. [Concomitant]
     Active Substance: TORSEMIDE
     Dosage: UNK
  16. ELIQUIS [Concomitant]
     Active Substance: APIXABAN
     Dosage: UNK
  17. TAMSULOSIN [Concomitant]
     Active Substance: TAMSULOSIN
     Dosage: UNK
  18. SODIUM POLYSTYRENE SULFONATE. [Concomitant]
     Active Substance: SODIUM POLYSTYRENE SULFONATE
     Dosage: UNK
  19. METHOTREXATE. [Concomitant]
     Active Substance: METHOTREXATE
     Dosage: UNK
  20. OXYCODONE [Concomitant]
     Active Substance: OXYCODONE
     Dosage: UNK

REACTIONS (8)
  - Haemorrhage [Unknown]
  - Fluid retention [Unknown]
  - Pain in extremity [Unknown]
  - Wound [Unknown]
  - Blister [Recovering/Resolving]
  - Fatigue [Not Recovered/Not Resolved]
  - Gait inability [Unknown]
  - Insomnia [Unknown]

NARRATIVE: CASE EVENT DATE: 2021
